FAERS Safety Report 6644519-1 (Version None)
Quarter: 2010Q1

REPORT INFORMATION
  Report Type: 
  Country: None (occurrence: None)
  Receive Date: 20100304
  Receipt Date: 20090813
  Transmission Date: 20100710
  Serious: Yes (Other)
  Sender: FDA-Public Use
  Company Number: US-003298

PATIENT
  Age: 28 Year
  Sex: Female
  Weight: 131 kg

DRUGS (2)
  1. ISOVUE-300 [Suspect]
     Indication: ANGIOGRAM
     Dosage: 65ML QD INTRAVENOUS (NOT OTHERWISE SPECIFIED)
     Route: 042
     Dates: start: 20090813, end: 20090813
  2. ISOVUE-300 [Suspect]
     Indication: HYPERTENSION
     Dosage: 65ML QD INTRAVENOUS (NOT OTHERWISE SPECIFIED)
     Route: 042
     Dates: start: 20090813, end: 20090813

REACTIONS (1)
  - HYPERSENSITIVITY [None]
